FAERS Safety Report 12608118 (Version 1)
Quarter: 2016Q3

REPORT INFORMATION
  Report Type: Spontaneous
  Country: US (occurrence: US)
  Receive Date: 20160729
  Receipt Date: 20160729
  Transmission Date: 20161109
  Serious: Yes (Other)
  Sender: FDA-Public Use
  Company Number: US-EPIC PHARMA LLC-2016EPC00014

PATIENT
  Sex: Female

DRUGS (1)
  1. URSODIOL. [Suspect]
     Active Substance: URSODIOL

REACTIONS (4)
  - Accidental exposure to product [Unknown]
  - Throat tightness [Unknown]
  - Flushing [Unknown]
  - Hypersensitivity [Unknown]
